FAERS Safety Report 10043480 (Version 2)
Quarter: 2014Q1

REPORT INFORMATION
  Report Type: Spontaneous
  Country: US (occurrence: US)
  Receive Date: 20140328
  Receipt Date: 20140331
  Transmission Date: 20141002
  Serious: No
  Sender: FDA-Public Use
  Company Number: US-TEVA-470890USA

PATIENT
  Age: 55 Year
  Sex: Male
  Weight: 118.04 kg

DRUGS (6)
  1. PROAIR HFA [Suspect]
     Indication: ASTHMA
     Dosage: 2 PUFFS EVERY 4 HOURS
     Route: 055
     Dates: start: 2009
  2. ALBUTEROL [Concomitant]
     Indication: ASTHMA
  3. ADVAIR [Concomitant]
     Indication: ASTHMA
  4. SINGULAIR [Concomitant]
     Indication: ASTHMA
  5. FLONASE [Concomitant]
     Indication: HYPERSENSITIVITY
  6. ISOSORBIDE [Concomitant]
     Indication: HYPERTENSION

REACTIONS (4)
  - Asthma [Not Recovered/Not Resolved]
  - Drug effect decreased [Not Recovered/Not Resolved]
  - Inappropriate schedule of drug administration [Not Recovered/Not Resolved]
  - Asthma [Not Recovered/Not Resolved]
